FAERS Safety Report 7919588-9 (Version None)
Quarter: 2011Q4

REPORT INFORMATION
  Report Type: 
  Country: None (occurrence: None)
  Receive Date: 20111117
  Receipt Date: 20111109
  Transmission Date: 20120403
  Serious: Yes (Hospitalization)
  Sender: FDA-Public Use
  Company Number: US-AMGEN-USASP2011059125

PATIENT
  Age: 67 Year
  Sex: Male

DRUGS (2)
  1. AREDIA [Concomitant]
  2. XGEVA [Suspect]
     Indication: HYPERCALCAEMIA
     Dosage: 120 MG, ONE TIME DOSE

REACTIONS (2)
  - RENAL IMPAIRMENT [None]
  - HYPERCALCAEMIA [None]
